FAERS Safety Report 8490937-9 (Version None)
Quarter: 2012Q3

REPORT INFORMATION
  Report Type: 
  Country: None (occurrence: None)
  Receive Date: 20120706
  Receipt Date: 20120628
  Transmission Date: 20120928
  Serious: Yes (Disabling)
  Sender: FDA-Public Use
  Company Number: DK-GE HEALTHCARE MEDICAL DIAGNOSTICS-OSCN-NO-1006S-0166

PATIENT
  Sex: Male
  Weight: 93 kg

DRUGS (1)
  1. OMNISCAN [Suspect]
     Indication: TRANSPLANT EVALUATION
     Route: 042
     Dates: start: 20030205, end: 20030205

REACTIONS (9)
  - SKIN DISCOLOURATION [None]
  - SKIN ATROPHY [None]
  - NEPHROGENIC SYSTEMIC FIBROSIS [None]
  - MOTOR DYSFUNCTION [None]
  - MUSCULOSKELETAL STIFFNESS [None]
  - ARTHRALGIA [None]
  - JOINT SWELLING [None]
  - MOBILITY DECREASED [None]
  - IMPAIRED WORK ABILITY [None]
